FAERS Safety Report 15727125 (Version 1)
Quarter: 2018Q4

REPORT INFORMATION
  Report Type: Spontaneous
  Country: DK (occurrence: DK)
  Receive Date: 20181217
  Receipt Date: 20181217
  Transmission Date: 20190205
  Serious: Yes (Other)
  Sender: FDA-Public Use
  Company Number: DK-TEVA-2018-DK-986994

PATIENT
  Age: 72 Year
  Sex: Male

DRUGS (1)
  1. PREDNISOLON ^ACTAVIS^ [Suspect]
     Active Substance: PREDNISOLONE
     Indication: LUNG DISORDER
     Dosage: 37.5 MILLIGRAM DAILY;
     Route: 048
     Dates: start: 20180412

REACTIONS (3)
  - Diabetes mellitus inadequate control [Recovered/Resolved]
  - Impaired driving ability [Recovered/Resolved]
  - Vision blurred [Recovered/Resolved]

NARRATIVE: CASE EVENT DATE: 201809
